FAERS Safety Report 6870822-6 (Version None)
Quarter: 2010Q3

REPORT INFORMATION
  Report Type: 
  Country: None (occurrence: None)
  Receive Date: 20100723
  Receipt Date: 20100712
  Transmission Date: 20110219
  Serious: Yes (Hospitalization)
  Sender: FDA-Public Use
  Company Number: JP-ELI_LILLY_AND_COMPANY-JP201006006312

PATIENT
  Sex: Male
  Weight: 70 kg

DRUGS (3)
  1. CYMBALTA [Suspect]
     Indication: DEPRESSION
     Dosage: 20 MG, DAILY (1/D)
     Route: 048
     Dates: start: 20100607, end: 20100612
  2. SERMION [Concomitant]
     Dosage: 5 MG, 3/D
     Route: 048
     Dates: start: 20100510, end: 20100612
  3. DOGMATYL [Concomitant]
     Indication: DEPRESSION
     Dosage: 50 MG, 3/D
     Route: 048
     Dates: start: 20100517, end: 20100612

REACTIONS (2)
  - URETHRAL HAEMORRHAGE [None]
  - URINARY RETENTION [None]
